FAERS Safety Report 5130492-4 (Version None)
Quarter: 2006Q4

REPORT INFORMATION
  Report Type: 
  Country: None (occurrence: None)
  Receive Date: 20061019
  Receipt Date: 20061016
  Transmission Date: 20070319
  Serious: Yes (Hospitalization)
  Sender: FDA-Public Use
  Company Number: US-GLAXOSMITHKLINE-A0624075A

PATIENT
  Sex: Female

DRUGS (5)
  1. LAMICTAL [Suspect]
     Indication: DRUG USE FOR UNKNOWN INDICATION
     Route: 048
  2. TEGRETOL [Suspect]
     Indication: DRUG USE FOR UNKNOWN INDICATION
  3. SEROQUEL [Suspect]
     Indication: DRUG USE FOR UNKNOWN INDICATION
     Dosage: 800MG AT NIGHT
  4. ABILIFY [Suspect]
     Indication: DRUG USE FOR UNKNOWN INDICATION
  5. XANAX [Concomitant]
     Dosage: 2MG FOUR TIMES PER DAY

REACTIONS (8)
  - CLOSTRIDIAL INFECTION [None]
  - DRUG INTERACTION [None]
  - DRUG LEVEL DECREASED [None]
  - FOOD CRAVING [None]
  - NIGHTMARE [None]
  - SUICIDAL IDEATION [None]
  - SUICIDE ATTEMPT [None]
  - WEIGHT INCREASED [None]
